FAERS Safety Report 10673769 (Version 1)
Quarter: 2014Q4

REPORT INFORMATION
  Report Type: Spontaneous
  Country: US (occurrence: None)
  Receive Date: 20141223
  Receipt Date: 20141223
  Transmission Date: 20150529
  Serious: No
  Sender: FDA-Public Use
  Company Number: None

PATIENT
  Age: 65 Year
  Sex: Female
  Weight: 59.88 kg

DRUGS (7)
  1. LANTISPEN [Concomitant]
  2. ATENOLOL. [Concomitant]
     Active Substance: ATENOLOL
  3. MULTI VITAMINS [Concomitant]
  4. NORVASC [Concomitant]
     Active Substance: AMLODIPINE BESYLATE
  5. INVEGA SUSTENNA [Suspect]
     Active Substance: PALIPERIDONE PALMITATE
     Indication: PRODUCT USED FOR UNKNOWN INDICATION
     Dosage: ??1 MOUTH?SHOT
     Dates: start: 20141007
  6. GLYRURIDE METFORIN [Concomitant]
  7. CLONIDINE. [Concomitant]
     Active Substance: CLONIDINE

REACTIONS (6)
  - Feeling jittery [None]
  - Sleep disorder [None]
  - Impaired driving ability [None]
  - Dysstasia [None]
  - Abasia [None]
  - Dysphagia [None]

NARRATIVE: CASE EVENT DATE: 20141008
